FAERS Safety Report 19661319 (Version 1)
Quarter: 2021Q3

REPORT INFORMATION
  Report Type: Spontaneous
  Country: EG (occurrence: EG)
  Receive Date: 20210805
  Receipt Date: 20210805
  Transmission Date: 20211014
  Serious: Yes (Other)
  Sender: FDA-Public Use
  Company Number: EG-SLATE RUN PHARMACEUTICALS-21EG000617

PATIENT

DRUGS (2)
  1. LEVOFLOXACIN. [Suspect]
     Active Substance: LEVOFLOXACIN
     Indication: COVID-19
     Dosage: 500 MILLIGRAM, QD
     Dates: start: 202006, end: 2020
  2. AZITHROMYCIN USP [Suspect]
     Active Substance: AZITHROMYCIN
     Indication: COVID-19
     Dosage: 500 MILLIGRAM, QD
     Route: 048
     Dates: start: 202006, end: 2020

REACTIONS (2)
  - Off label use [Recovered/Resolved]
  - Leukoplakia oral [Recovered/Resolved]

NARRATIVE: CASE EVENT DATE: 2020
